FAERS Safety Report 19413372 (Version 1)
Quarter: 2021Q2

REPORT INFORMATION
  Report Type: Spontaneous
  Country: CA (occurrence: CA)
  Receive Date: 20210615
  Receipt Date: 20210615
  Transmission Date: 20210717
  Serious: Yes (Hospitalization, Other)
  Sender: FDA-Public Use
  Company Number: CA-BAUSCH-BL-2021-020604

PATIENT
  Age: 44 Year
  Sex: Male

DRUGS (12)
  1. ZOPICLONE [Suspect]
     Active Substance: ZOPICLONE
     Indication: PAIN
     Route: 065
  2. MAGNESIUM SULFATE. [Suspect]
     Active Substance: MAGNESIUM SULFATE
     Indication: ANALGESIC THERAPY
     Route: 065
  3. DEXAMETHASONE. [Suspect]
     Active Substance: DEXAMETHASONE
     Indication: PROPHYLAXIS
     Route: 042
  4. MIDAZOLAM HYDROCHLORIDE. [Suspect]
     Active Substance: MIDAZOLAM HYDROCHLORIDE
     Indication: PROPHYLAXIS
     Route: 042
  5. LIDOCAINE. [Suspect]
     Active Substance: LIDOCAINE
     Indication: ANALGESIC THERAPY
     Dosage: DOSAGE FORM: OINTMENT TOPICAL
     Route: 061
  6. TEVA?DULOXETINE [Suspect]
     Active Substance: DULOXETINE
     Indication: PAIN
     Route: 065
  7. AMITRIPTYLINE [Suspect]
     Active Substance: AMITRIPTYLINE
     Indication: PAIN
     Route: 065
  8. CANNABIDIOL [Suspect]
     Active Substance: CANNABIDIOL
     Indication: PAIN
     Route: 065
  9. ONDANSETRON [Suspect]
     Active Substance: ONDANSETRON
     Indication: PROPHYLAXIS
     Route: 042
  10. KETAMINE [Suspect]
     Active Substance: KETAMINE
     Indication: PAIN
     Route: 042
  11. KETAMINE [Suspect]
     Active Substance: KETAMINE
     Route: 042
  12. TEMAZEPAM. [Suspect]
     Active Substance: TEMAZEPAM
     Indication: PAIN
     Route: 065

REACTIONS (1)
  - Behaviour disorder [Recovered/Resolved]
